FAERS Safety Report 23150008 (Version 3)
Quarter: 2023Q4

REPORT INFORMATION
  Report Type: Spontaneous
  Country: US (occurrence: US)
  Receive Date: 20231106
  Receipt Date: 20231219
  Transmission Date: 20240109
  Serious: Yes (Other)
  Sender: FDA-Public Use
  Company Number: US-PFIZER INC-PV202300180065

PATIENT
  Age: 67 Year
  Weight: 72.6 kg

DRUGS (6)
  1. INLYTA [Suspect]
     Active Substance: AXITINIB
     Indication: Metastatic renal cell carcinoma
     Dosage: 5 MG, 2X/DAY
     Dates: start: 20220218
  2. INLYTA [Suspect]
     Active Substance: AXITINIB
     Dosage: 3 TABS (3 MG TOTAL) EVERY 12 HOURS)
     Route: 048
     Dates: start: 20220705, end: 20221215
  3. INLYTA [Suspect]
     Active Substance: AXITINIB
     Dosage: 2 MG, 2X/DAY
     Dates: start: 202212
  4. INLYTA [Suspect]
     Active Substance: AXITINIB
     Dosage: 3 TAB (3 MG TOTAL) EVERY 12 HR, AT EVENLY SPACED INTERVALS, WITH OR WITHOUT FOOD, WITH WATER
     Route: 048
  5. KEYTRUDA [Suspect]
     Active Substance: PEMBROLIZUMAB
     Indication: Metastatic renal cell carcinoma
     Dosage: 1 DF
     Dates: start: 20220218
  6. KEYTRUDA [Suspect]
     Active Substance: PEMBROLIZUMAB
     Dosage: UNK, EVERY 3 WEEKS
     Dates: start: 20220705

REACTIONS (3)
  - Gingival operation [Unknown]
  - Mucosal inflammation [Unknown]
  - Weight decreased [Unknown]

NARRATIVE: CASE EVENT DATE: 20221215
